FAERS Safety Report 21647277 (Version 1)
Quarter: 2022Q4

REPORT INFORMATION
  Report Type: Spontaneous
  Country: CZ (occurrence: CZ)
  Receive Date: 20221127
  Receipt Date: 20221127
  Transmission Date: 20230112
  Serious: Yes (Hospitalization, Disabling, Other)
  Sender: FDA-Public Use
  Company Number: None

PATIENT
  Age: 66 Year
  Sex: Male
  Weight: 72 kg

DRUGS (9)
  1. YERVOY [Suspect]
     Active Substance: IPILIMUMAB
     Indication: Renal cell carcinoma
     Dosage: COMBINED IMUNOTHERAPY IPILIMUMAB 1MG/KG + NIVOLUMAB 3MG/KG
     Route: 042
     Dates: start: 20221014, end: 20221014
  2. OPDIVO [Suspect]
     Active Substance: NIVOLUMAB
     Indication: Renal cell carcinoma
     Dosage: COMBINED IMUNOTHERAPY IPILIMUMAB 1MG/KG + NIVOLUMAB 3MG/KG
     Route: 042
     Dates: start: 20221014, end: 20221014
  3. HYDROCHLOROTHIAZIDE [Concomitant]
     Active Substance: HYDROCHLOROTHIAZIDE
     Indication: Hypertension
     Dosage: 1/2-0-0
     Route: 048
  4. FENTALIS [FENTANYL] [Concomitant]
     Indication: Pain
     Dosage: 50 UG/HOUR
     Route: 003
  5. PREGABALIN [Concomitant]
     Active Substance: PREGABALIN
     Indication: Neuropathy peripheral
     Dosage: 1-0-1?(3-0-3 DURING HOSPITALIZATION)
     Route: 048
     Dates: start: 20220921
  6. MIRTAZAPINE [Concomitant]
     Active Substance: MIRTAZAPINE
     Indication: Depression
     Dosage: 0-0-1
     Route: 048
     Dates: start: 20220921
  7. MIRTAZAPINE [Concomitant]
     Active Substance: MIRTAZAPINE
     Indication: Insomnia
  8. BISOPROLOL [Concomitant]
     Active Substance: BISOPROLOL
     Indication: Hypertension
     Dosage: 2,5MG TWICE A DAY
     Route: 048
  9. PERINDOPRIL [Concomitant]
     Active Substance: PERINDOPRIL
     Indication: Hypertension
     Dosage: 1-0-0
     Route: 048

REACTIONS (2)
  - Monoparesis [Not Recovered/Not Resolved]
  - Neuralgic amyotrophy [Not Recovered/Not Resolved]

NARRATIVE: CASE EVENT DATE: 20221031
